FAERS Safety Report 13971850 (Version 1)
Quarter: 2017Q3

REPORT INFORMATION
  Report Type: Spontaneous
  Country: US (occurrence: US)
  Receive Date: 20170914
  Receipt Date: 20170914
  Transmission Date: 20171128
  Serious: No
  Sender: FDA-Public Use
  Company Number: US-ASTELLAS-2016US036289

PATIENT
  Age: 74 Year
  Sex: Male

DRUGS (1)
  1. XTANDI [Suspect]
     Active Substance: ENZALUTAMIDE
     Indication: PROSTATE CANCER
     Route: 048
     Dates: start: 20160824

REACTIONS (9)
  - Fatigue [Unknown]
  - Initial insomnia [Unknown]
  - Dysphagia [Unknown]
  - Arthralgia [Recovered/Resolved]
  - Hot flush [Recovered/Resolved]
  - Joint lock [Unknown]
  - Dizziness [Unknown]
  - Depression [Unknown]
  - Pain in extremity [Unknown]

NARRATIVE: CASE EVENT DATE: 201610
